FAERS Safety Report 13860126 (Version 1)
Quarter: 2017Q3

REPORT INFORMATION
  Report Type: Report from Study
  Country: None (occurrence: BR)
  Receive Date: 20170811
  Receipt Date: 20170811
  Transmission Date: 20171127
  Serious: Yes (Other)
  Sender: FDA-Public Use
  Company Number: BR-ABBVIE-17K-020-2067722-00

PATIENT
  Age: 59 Year
  Sex: Female
  Weight: 62 kg

DRUGS (1)
  1. HUMIRA [Suspect]
     Active Substance: ADALIMUMAB
     Indication: AXIAL SPONDYLOARTHRITIS
     Route: 058
     Dates: start: 20160811

REACTIONS (6)
  - Back pain [Unknown]
  - Vision blurred [Not Recovered/Not Resolved]
  - Allergy to arthropod bite [Recovered/Resolved]
  - Epiglottitis obstructive [Recovered/Resolved]
  - Burns second degree [Recovered/Resolved]
  - Burns second degree [Recovering/Resolving]

NARRATIVE: CASE EVENT DATE: 201703
